FAERS Safety Report 4348275-1 (Version None)
Quarter: 2004Q2

REPORT INFORMATION
  Report Type: 
  Country: None (occurrence: None)
  Receive Date: 20040422
  Receipt Date: 20040402
  Transmission Date: 20050107
  Serious: Yes (Other)
  Sender: FDA-Public Use
  Company Number: JP_040402937

PATIENT
  Age: 44 Year
  Sex: Male
  Weight: 80 kg

DRUGS (3)
  1. VANCOMYCIN [Suspect]
     Indication: STAPHYLOCOCCAL INFECTION
     Dosage: 1000 MG/2 DAY
     Dates: start: 20031208, end: 20040106
  2. VOLTAREN [Concomitant]
  3. SELBEX (TEPRENONE) [Concomitant]

REACTIONS (1)
  - GRANULOCYTE COUNT DECREASED [None]
